FAERS Safety Report 12048416 (Version 1)
Quarter: 2016Q1

REPORT INFORMATION
  Report Type: Other
  Country: US (occurrence: US)
  Receive Date: 20160209
  Receipt Date: 20160209
  Transmission Date: 20160526
  Serious: Yes (Death, Other)
  Sender: FDA-Public Use
  Company Number: US-DEXPHARM-20160128

PATIENT
  Age: 38 Year
  Sex: Male
  Weight: 91.2 kg

DRUGS (8)
  1. VERAPAMIL [Suspect]
     Active Substance: VERAPAMIL HYDROCHLORIDE
     Dosage: DAILY DOSE: 240 MG MILLGRAM(S) EVERY DAYS
  2. DULOXETINE. [Suspect]
     Active Substance: DULOXETINE
  3. PREGABALIN. [Suspect]
     Active Substance: PREGABALIN
  4. PROPRANOLOL [Suspect]
     Active Substance: PROPRANOLOL\PROPRANOLOL HYDROCHLORIDE
  5. LORAZEPAM. [Suspect]
     Active Substance: LORAZEPAM
  6. OMEPRAZOLE. [Suspect]
     Active Substance: OMEPRAZOLE
  7. DICLOFENAC [Suspect]
     Active Substance: DICLOFENAC
  8. TADALAFIL [Suspect]
     Active Substance: TADALAFIL

REACTIONS (3)
  - Unresponsive to stimuli [Unknown]
  - Toxicity to various agents [Fatal]
  - Intentional overdose [Fatal]
